FAERS Safety Report 8796246 (Version 2)
Quarter: 2013Q4

REPORT INFORMATION
  Report Type: Spontaneous
  Country: US (occurrence: US)
  Receive Date: 20120919
  Receipt Date: 20131101
  Transmission Date: 20140711
  Serious: No
  Sender: FDA-Public Use
  Company Number: US-009507513-1209USA004916

PATIENT
  Age: 55 Year
  Sex: Male

DRUGS (6)
  1. VICTRELIS [Suspect]
     Indication: HEPATITIS C
     Dosage: 800 MG, TID
     Route: 048
     Dates: start: 20120514
  2. PRINIVIL [Concomitant]
  3. METFORMIN [Concomitant]
  4. JANUVIA [Concomitant]
  5. ASPIRIN [Concomitant]
  6. PROZAC [Concomitant]

REACTIONS (2)
  - Viral load increased [Recovered/Resolved]
  - Drug ineffective [Unknown]
